FAERS Safety Report 5503257-9 (Version None)
Quarter: 2007Q4

REPORT INFORMATION
  Report Type: 
  Country: None (occurrence: None)
  Receive Date: 20071031
  Receipt Date: 20071016
  Transmission Date: 20080405
  Serious: Yes (Hospitalization)
  Sender: FDA-Public Use
  Company Number: JP-PFIZER INC-2007090374

PATIENT
  Age: 41 Year
  Sex: Male

DRUGS (3)
  1. LIPITOR [Suspect]
     Indication: HYPERLIPIDAEMIA
     Route: 048
     Dates: start: 20060201, end: 20060701
  2. METHYLPREDNISOLONE SODIUM SUCCINATE [Concomitant]
     Indication: THROMBOTIC THROMBOCYTOPENIC PURPURA
     Dosage: DAILY DOSE:1GRAM
  3. PREDNISOLONE [Concomitant]
     Indication: THROMBOTIC THROMBOCYTOPENIC PURPURA
     Dosage: DAILY DOSE:60MG

REACTIONS (3)
  - CYTOMEGALOVIRUS ANTIBODY POSITIVE [None]
  - HYPERGLYCAEMIA [None]
  - THROMBOTIC THROMBOCYTOPENIC PURPURA [None]
